FAERS Safety Report 22177922 (Version 5)
Quarter: 2024Q3

REPORT INFORMATION
  Report Type: Report from Study
  Country: US (occurrence: US)
  Receive Date: 20230405
  Receipt Date: 20240926
  Transmission Date: 20241017
  Serious: Yes (Hospitalization, Other)
  Sender: OTSUKA
  Company Number: US-OTSUKA-2023_008531

PATIENT
  Age: 54 Year
  Sex: Female

DRUGS (1)
  1. DEXTROMETHORPHAN HYDROBROMIDE\QUINIDINE SULFATE [Suspect]
     Active Substance: DEXTROMETHORPHAN HYDROBROMIDE\QUINIDINE SULFATE
     Indication: Affect lability
     Dosage: 1 DF, BID (EVERY 12 HOURS)
     Route: 048
     Dates: start: 202107

REACTIONS (22)
  - Transient ischaemic attack [Unknown]
  - Loss of consciousness [Recovered/Resolved]
  - Vagal nerve stimulator implantation [Recovering/Resolving]
  - Seizure [Recovering/Resolving]
  - Stress [Unknown]
  - Illness [Recovering/Resolving]
  - Joint injury [Not Recovered/Not Resolved]
  - Aggression [Unknown]
  - Norovirus infection [Recovering/Resolving]
  - Dysphonia [Not Recovered/Not Resolved]
  - Rhinorrhoea [Unknown]
  - Pruritus [Unknown]
  - Vertigo [Not Recovered/Not Resolved]
  - Migraine [Not Recovered/Not Resolved]
  - Migraine [Not Recovered/Not Resolved]
  - Confusional state [Unknown]
  - Memory impairment [Unknown]
  - Muscle spasms [Unknown]
  - Diarrhoea [Unknown]
  - Anxiety [Unknown]
  - Disease recurrence [Unknown]
  - Product dose omission issue [Unknown]

NARRATIVE: CASE EVENT DATE: 20220417
